FAERS Safety Report 5487240-8 (Version None)
Quarter: 2007Q3

REPORT INFORMATION
  Report Type: 
  Country: None (occurrence: None)
  Receive Date: 20070925
  Receipt Date: 20070720
  Transmission Date: 20080115
  Serious: No
  Sender: FDA-Public Use
  Company Number: 2007US001680

PATIENT
  Age: 66 Year
  Sex: Female

DRUGS (10)
  1. VESICARE [Suspect]
     Indication: STRESS URINARY INCONTINENCE
     Dosage: 5 MG, ORAL
     Route: 048
     Dates: start: 20050101
  2. SURMONTIL [Concomitant]
  3. DIOVAN [Concomitant]
  4. LOPID [Concomitant]
  5. SYNTHROID [Concomitant]
  6. MIRALAX [Concomitant]
  7. SERAX [Concomitant]
  8. BONIVA (IBANDRONATE SODIUM) [Concomitant]
  9. EFFEXOR [Concomitant]
  10. PSEUDOEPHEDRINE HCL [Concomitant]

REACTIONS (2)
  - DRUG INEFFECTIVE [None]
  - URINARY INCONTINENCE [None]
